FAERS Safety Report 10272820 (Version 1)
Quarter: 2014Q2

REPORT INFORMATION
  Report Type: Spontaneous
  Country: US (occurrence: None)
  Receive Date: 20140630
  Receipt Date: 20140630
  Transmission Date: 20141212
  Serious: No
  Sender: FDA-Public Use
  Company Number: None

PATIENT
  Age: 48 Year
  Sex: 0

DRUGS (2)
  1. AMPHETAMINE SALTS ER 20MG [Suspect]
     Indication: ATTENTION DEFICIT/HYPERACTIVITY DISORDER
     Dosage: 2 PILS ?ONCE DAILY?TAKEN BY MOUTH
     Route: 048
     Dates: start: 20140617, end: 20140627
  2. GENERAL DAILY VITAMINS [Concomitant]

REACTIONS (5)
  - Drug ineffective [None]
  - Product substitution issue [None]
  - Product quality issue [None]
  - Somnolence [None]
  - Depression [None]
